FAERS Safety Report 8970673 (Version 1)
Quarter: 2012Q4

REPORT INFORMATION
  Report Type: 
  Country: US (occurrence: US)
  Receive Date: 20121218
  Receipt Date: 20121218
  Transmission Date: 20130627
  Serious: No
  Sender: FDA-Public Use
  Company Number: US-GLAXOSMITHKLINE-A0991279A

PATIENT
  Age: 64 Year
  Sex: Male

DRUGS (1)
  1. NICORETTE NICOTINE POLACRILEX LOZENGE, 2MG [Suspect]
     Indication: EX-TOBACCO USER

REACTIONS (2)
  - Abdominal pain upper [Recovered/Resolved]
  - Drug administration error [Unknown]
